FAERS Safety Report 6923486-7 (Version None)
Quarter: 2010Q3

REPORT INFORMATION
  Report Type: 
  Country: None (occurrence: None)
  Receive Date: 20100813
  Receipt Date: 20100804
  Transmission Date: 20110219
  Serious: Yes (Other)
  Sender: FDA-Public Use
  Company Number: PL-GENZYME-CERZ-1001431

PATIENT

DRUGS (2)
  1. CEREZYME [Suspect]
     Indication: GAUCHER'S DISEASE
     Dosage: 30 U/KG, Q2W
     Route: 042
     Dates: start: 20080101
  2. CEREZYME [Suspect]
     Dosage: 60 U/KG, Q2W
     Route: 042
     Dates: start: 20070101

REACTIONS (1)
  - ABORTION SPONTANEOUS [None]
